FAERS Safety Report 5163664-3 (Version None)
Quarter: 2006Q4

REPORT INFORMATION
  Report Type: 
  Country: None (occurrence: None)
  Receive Date: 20061204
  Receipt Date: 20060926
  Transmission Date: 20070319
  Serious: Yes (Other)
  Sender: FDA-Public Use
  Company Number: BR-GLAXOSMITHKLINE-A0621834A

PATIENT
  Age: 32 Year
  Sex: Female
  Weight: 74 kg

DRUGS (2)
  1. AEROLIN [Suspect]
     Indication: PREMATURE LABOUR
     Dosage: 4MG FOUR TIMES PER DAY
     Route: 048
     Dates: start: 20060925
  2. DIPYRONE + HYOSCINE BUTYLBROMIDE [Concomitant]
     Dates: start: 20060925

REACTIONS (6)
  - DRUG EXPOSURE DURING PREGNANCY [None]
  - LIVE BIRTH [None]
  - NEPHROLITHIASIS [None]
  - RENAL PAIN [None]
  - TACHYCARDIA [None]
  - TREMOR [None]
